FAERS Safety Report 9361609 (Version 6)
Quarter: 2014Q4

REPORT INFORMATION
  Report Type: Report from Study
  Country: US (occurrence: US)
  Receive Date: 20130621
  Receipt Date: 20141105
  Transmission Date: 20150529
  Serious: Yes (Other)
  Sender: FDA-Public Use
  Company Number: US-SANOFI-AVENTIS-2013SA040477

PATIENT
  Age: 44 Year
  Sex: Female

DRUGS (11)
  1. AUBAGIO [Suspect]
     Active Substance: TERIFLUNOMIDE
     Indication: MULTIPLE SCLEROSIS
     Route: 048
     Dates: start: 20130110
  2. AUBAGIO [Suspect]
     Active Substance: TERIFLUNOMIDE
     Indication: MULTIPLE SCLEROSIS
     Route: 048
     Dates: start: 20130103
  3. XANAX [Concomitant]
     Active Substance: ALPRAZOLAM
  4. PREDNISONE. [Concomitant]
     Active Substance: PREDNISONE
  5. NEURONTIN [Concomitant]
     Active Substance: GABAPENTIN
  6. HYDROCHLOROTHIAZIDE. [Concomitant]
     Active Substance: HYDROCHLOROTHIAZIDE
  7. AUBAGIO [Suspect]
     Active Substance: TERIFLUNOMIDE
     Indication: MULTIPLE SCLEROSIS
     Route: 048
  8. ALL OTHER THERAPEUTIC PRODUCTS [Concomitant]
     Active Substance: UNSPECIFIED INGREDIENT
  9. AUBAGIO [Suspect]
     Active Substance: TERIFLUNOMIDE
     Indication: MULTIPLE SCLEROSIS
     Route: 048
     Dates: start: 20130103
  10. ALL OTHER THERAPEUTIC PRODUCTS [Concomitant]
     Active Substance: UNSPECIFIED INGREDIENT
  11. LISINOPRIL. [Concomitant]
     Active Substance: LISINOPRIL

REACTIONS (35)
  - Rash [Recovered/Resolved]
  - Blood cholesterol increased [Unknown]
  - Contusion [Not Recovered/Not Resolved]
  - Nervous system disorder [Unknown]
  - Hypoaesthesia oral [Unknown]
  - Drooling [Unknown]
  - Multiple sclerosis relapse [Unknown]
  - White blood cell count increased [Unknown]
  - Fall [Unknown]
  - Asthenia [Unknown]
  - Vision blurred [Not Recovered/Not Resolved]
  - Paraesthesia [Not Recovered/Not Resolved]
  - Insomnia [Unknown]
  - Muscular weakness [Not Recovered/Not Resolved]
  - Memory impairment [Not Recovered/Not Resolved]
  - Urinary retention [Unknown]
  - Red blood cell count increased [Unknown]
  - Unevaluable event [Not Recovered/Not Resolved]
  - Eye swelling [Not Recovered/Not Resolved]
  - Eye disorder [Not Recovered/Not Resolved]
  - Photophobia [Unknown]
  - Peripheral swelling [Unknown]
  - Balance disorder [Unknown]
  - Hot flush [Unknown]
  - Diabetes mellitus [Unknown]
  - Limb discomfort [Not Recovered/Not Resolved]
  - Urinary incontinence [Not Recovered/Not Resolved]
  - Gait disturbance [Unknown]
  - Feeling hot [Unknown]
  - Uterine disorder [Unknown]
  - Mydriasis [Not Recovered/Not Resolved]
  - Hyperhidrosis [Unknown]
  - Grip strength decreased [Unknown]
  - Alopecia [Recovering/Resolving]
  - Paraesthesia [Unknown]

NARRATIVE: CASE EVENT DATE: 2013
